FAERS Safety Report 18590037 (Version 1)
Quarter: 2020Q4

REPORT INFORMATION
  Report Type: Spontaneous
  Country: US (occurrence: US)
  Receive Date: 20201207
  Receipt Date: 20201207
  Transmission Date: 20210114
  Serious: No
  Sender: FDA-Public Use
  Company Number: None

PATIENT
  Age: 46 Year
  Sex: Male
  Weight: 136.08 kg

DRUGS (4)
  1. STELARA [Suspect]
     Active Substance: USTEKINUMAB
     Indication: PSORIATIC ARTHROPATHY
     Dosage: ?          OTHER FREQUENCY:D 0 AND D 28;?
     Route: 058
     Dates: start: 201902
  2. STELARA [Suspect]
     Active Substance: USTEKINUMAB
     Indication: PSORIASIS
     Dosage: ?          OTHER FREQUENCY:D 0 AND D 28;?
     Route: 058
     Dates: start: 201902
  3. OTEZLA [Suspect]
     Active Substance: APREMILAST
     Indication: PSORIASIS
     Dosage: ?          OTHER DOSE:TAKE 1 TABLET;?
     Route: 048
     Dates: start: 202005
  4. OTEZLA [Suspect]
     Active Substance: APREMILAST
     Indication: PSORIATIC ARTHROPATHY
     Dosage: ?          OTHER DOSE:TAKE 1 TABLET;?
     Route: 048
     Dates: start: 202005

REACTIONS (2)
  - Therapy interrupted [None]
  - COVID-19 [None]
